FAERS Safety Report 16959501 (Version 6)
Quarter: 2021Q2

REPORT INFORMATION
  Report Type: Spontaneous
  Country: US (occurrence: US)
  Receive Date: 20191025
  Receipt Date: 20210608
  Transmission Date: 20210716
  Serious: Yes (Other)
  Sender: FDA-Public Use
  Company Number: US-BRISTOL-MYERS SQUIBB COMPANY-BMS-2019-102496

PATIENT
  Age: 49 Year
  Sex: Male
  Weight: 72.56 kg

DRUGS (2)
  1. ELIQUIS [Suspect]
     Active Substance: APIXABAN
     Indication: PULMONARY EMBOLISM
     Dosage: 10 MILLIGRAM, BID
     Route: 048
     Dates: start: 201910
  2. ELIQUIS [Suspect]
     Active Substance: APIXABAN
     Dosage: 5 MILLIGRAM, BID
     Route: 048
     Dates: end: 202003

REACTIONS (10)
  - Wound [Unknown]
  - Muscle tightness [Unknown]
  - Musculoskeletal stiffness [Unknown]
  - Impaired healing [Unknown]
  - Intentional product use issue [Unknown]
  - Muscle spasms [Unknown]
  - Pulmonary embolism [Unknown]
  - Face injury [Unknown]
  - Skin discolouration [Unknown]
  - Arthralgia [Unknown]

NARRATIVE: CASE EVENT DATE: 201910
